FAERS Safety Report 6680727-1 (Version None)
Quarter: 2010Q2

REPORT INFORMATION
  Report Type: 
  Country: None (occurrence: None)
  Receive Date: 20100414
  Receipt Date: 20100331
  Transmission Date: 20101027
  Serious: Yes (Hospitalization, Other)
  Sender: FDA-Public Use
  Company Number: PHHY2010US20592

PATIENT
  Sex: Female
  Weight: 98.6 kg

DRUGS (27)
  1. AREDIA [Suspect]
     Indication: LUNG CARCINOMA CELL TYPE UNSPECIFIED STAGE IV
     Dosage: EVERY 3 WEEKS
     Dates: start: 20090821
  2. PLAVIX [Suspect]
     Indication: STENT PLACEMENT
     Dosage: 75 MG, QD
     Route: 048
     Dates: start: 20060501, end: 20100210
  3. PLAVIX [Suspect]
     Dosage: 75 MG, QD
     Route: 048
     Dates: start: 20100216
  4. TAXOL [Suspect]
     Indication: LUNG CARCINOMA CELL TYPE UNSPECIFIED STAGE IV
     Dosage: EVERY 3 WEEKS
     Dates: start: 20090821
  5. AVASTIN [Suspect]
     Indication: LUNG CARCINOMA CELL TYPE UNSPECIFIED STAGE IV
     Dosage: EVERY 3 WEEKS
     Dates: start: 20090821
  6. CARBOPLATIN [Suspect]
     Indication: LUNG CARCINOMA CELL TYPE UNSPECIFIED STAGE IV
     Dosage: EVERY 3 WEEKS
     Dates: start: 20090821
  7. ALIMTA [Suspect]
     Dosage: 10 MG EVERY CYCLE
     Dates: start: 20100202
  8. IPRATROPIUM BROMIDE W/SALBUTAMOL [Concomitant]
  9. HYDROCHLOROTHIAZIDE [Concomitant]
     Dosage: UNK
     Dates: start: 20020101
  10. ANTIHYPERTENSIVES [Concomitant]
     Dosage: UNK
     Dates: start: 20080714
  11. COZAAR [Concomitant]
     Dosage: UNK
     Dates: end: 20100210
  12. ZANTAC [Concomitant]
  13. COMPAZINE [Concomitant]
  14. FOLIC ACID [Concomitant]
  15. VITAMIN D3 [Concomitant]
  16. VITAMIN B COMPLEX CAP [Concomitant]
  17. MULTI-VITAMINS [Concomitant]
  18. MAGNESIUM [Concomitant]
  19. OXYGEN [Concomitant]
  20. ECOTRIN [Concomitant]
     Dosage: UNK
     Dates: end: 20080101
  21. BENADRYL [Concomitant]
  22. THEO-DUR [Concomitant]
  23. SYNTHROID [Concomitant]
  24. SLOW-K [Concomitant]
  25. GLUCOPHAGE [Concomitant]
     Dosage: UNK
     Dates: start: 20020101
  26. CORTICOSTEROIDS [Concomitant]
  27. ANTIEMETICS AND ANTINAUSEANTS [Concomitant]

REACTIONS (11)
  - ALOPECIA [None]
  - BLOOD PRESSURE DECREASED [None]
  - COMPRESSION FRACTURE [None]
  - DEHYDRATION [None]
  - DIARRHOEA [None]
  - EPISTAXIS [None]
  - FALL [None]
  - GRIP STRENGTH DECREASED [None]
  - NAUSEA [None]
  - NEUROPATHY PERIPHERAL [None]
  - PERIPHERAL COLDNESS [None]
